FAERS Safety Report 9199297 (Version 1)
Quarter: 2013Q1

REPORT INFORMATION
  Report Type: Report from Study
  Country: US (occurrence: US)
  Receive Date: 20130329
  Receipt Date: 20130329
  Transmission Date: 20140127
  Serious: No
  Sender: FDA-Public Use
  Company Number: US-009507513-1303USA011165

PATIENT
  Sex: Female

DRUGS (2)
  1. TEMODAR [Suspect]
     Dosage: 75 MG, UNK
     Route: 048
  2. TEMODAR [Suspect]
     Dosage: 150 MG, UNK
     Route: 048
     Dates: end: 20130321

REACTIONS (4)
  - Swelling [Unknown]
  - Lip swelling [Unknown]
  - Rash [Unknown]
  - Rash [Unknown]
